FAERS Safety Report 9467565 (Version 1)
Quarter: 2013Q3

REPORT INFORMATION
  Report Type: Spontaneous
  Country: CH (occurrence: CH)
  Receive Date: 20130821
  Receipt Date: 20130821
  Transmission Date: 20140515
  Serious: Yes (Hospitalization, Other)
  Sender: FDA-Public Use
  Company Number: CH-009507513-1308CHE008017

PATIENT
  Age: 20 Year
  Sex: Female

DRUGS (6)
  1. AERIUS [Suspect]
     Dosage: 50 MG, ONCE
     Route: 048
     Dates: start: 20130509, end: 20130509
  2. QUETIAPINE FUMARATE [Suspect]
     Dosage: 2000 MG, ONCE
     Route: 048
     Dates: start: 20130509, end: 20130509
  3. QUETIAPINE FUMARATE [Suspect]
     Dosage: 250 MG, ONCE
     Route: 048
     Dates: start: 20130509, end: 20130509
  4. CLOZAPINE [Suspect]
     Dosage: 250 MG, ONCE
     Route: 048
     Dates: start: 20130509, end: 20130509
  5. ISOTRETINOIN [Suspect]
     Dosage: UNKNOWN
     Route: 048
     Dates: start: 20130509, end: 20130509
  6. LOPERAMIDE HYDROCHLORIDE [Suspect]
     Dosage: UNKNOWN
     Route: 048
     Dates: start: 20130509, end: 20130509

REACTIONS (5)
  - Electrocardiogram QT prolonged [Recovered/Resolved]
  - Hallucination [Not Recovered/Not Resolved]
  - Pyrexia [Not Recovered/Not Resolved]
  - Somnolence [Recovered/Resolved]
  - Tachycardia [Recovered/Resolved]
